FAERS Safety Report 6068920-2 (Version None)
Quarter: 2009Q1

REPORT INFORMATION
  Report Type: 
  Country: None (occurrence: None)
  Receive Date: 20090206
  Receipt Date: 20090202
  Transmission Date: 20090719
  Serious: Yes (Death, Life-Threatening, Hospitalization)
  Sender: FDA-Public Use
  Company Number: JP-BAYER-200813019BYL

PATIENT
  Age: 77 Year
  Sex: Male
  Weight: 65 kg

DRUGS (8)
  1. NEXAVAR [Suspect]
     Indication: RENAL CELL CARCINOMA STAGE IV
     Dosage: TOTAL DAILY DOSE: 800 MG  UNIT DOSE: 200 MG
     Route: 048
     Dates: start: 20081023, end: 20081202
  2. SALOBEL [Concomitant]
     Route: 048
     Dates: start: 20081105
  3. CEROCRAL [Concomitant]
     Route: 048
  4. TENORMIN [Concomitant]
     Route: 048
  5. BLOPRESS [Concomitant]
     Route: 048
  6. VASOLAN [Concomitant]
     Route: 048
  7. WARFARIN [Concomitant]
     Route: 048
     Dates: end: 20081202
  8. LASIX [Concomitant]
     Indication: URINE OUTPUT DECREASED
     Route: 065

REACTIONS (4)
  - DISSEMINATED INTRAVASCULAR COAGULATION [None]
  - HEPATIC FUNCTION ABNORMAL [None]
  - PALMAR-PLANTAR ERYTHRODYSAESTHESIA SYNDROME [None]
  - RASH [None]
